FAERS Safety Report 8134366-6 (Version None)
Quarter: 2012Q1

REPORT INFORMATION
  Report Type: 
  Country: None (occurrence: None)
  Receive Date: 20120209
  Receipt Date: 20120206
  Transmission Date: 20120608
  Serious: Yes (Hospitalization, Other)
  Sender: FDA-Public Use
  Company Number: 1000023384

PATIENT
  Age: 77 Year
  Sex: Male
  Weight: 77.79 kg

DRUGS (14)
  1. PLAVIX (CLOPIDOGREL BISULFATE) (CLOPIDOGREL BISULFATE) [Concomitant]
  2. SPIRIVA(TIOTROPIUM BROMIDE)(TIOTROPIUM BROMIDE) [Concomitant]
  3. LEXAPRO(ESCITALOPRAM OXALATE)(ESCITALOPRAM OXALATE) [Concomitant]
  4. LIPITOR [Concomitant]
  5. NAMENDA [Concomitant]
  6. CARDIZEM [Concomitant]
  7. EXELON(RIVASTIGMINE)(RIVASTIGMINE) [Concomitant]
  8. ADVAIR(FLUTICASONE, SALMETEROL)(FLUTICASONE SALMETEROL) [Concomitant]
  9. UROXATRAL(ALFUZOSIN HYDROCHLORIDE)(ALFUZOSIN HYDROCHLORIDE) [Concomitant]
  10. DALIRESP [Suspect]
     Indication: CHRONIC OBSTRUCTIVE PULMONARY DISEASE
     Dosage: 500 MCG (500 MCG, 1 IN 1 D), ORAL
     Route: 048
     Dates: end: 20110814
  11. DALIRESP [Suspect]
     Dosage: 2500 MCG (500 MCG,5 IN 1 D), ORAL
     Route: 048
     Dates: start: 20110813, end: 20110813
  12. ASPIRIN [Concomitant]
  13. MICARDIS [Concomitant]
  14. DIOVAN [Concomitant]

REACTIONS (7)
  - DIZZINESS [None]
  - ORTHOSTATIC HYPOTENSION [None]
  - BRAIN SCAN ABNORMAL [None]
  - ABDOMINAL PAIN [None]
  - ACCIDENTAL OVERDOSE [None]
  - CHEST PAIN [None]
  - PRESYNCOPE [None]
